FAERS Safety Report 7132616-6 (Version None)
Quarter: 2010Q4

REPORT INFORMATION
  Report Type: 
  Country: None (occurrence: None)
  Receive Date: 20101130
  Receipt Date: 20101130
  Transmission Date: 20110411
  Serious: Yes (Other)
  Sender: FDA-Public Use
  Company Number: None

PATIENT
  Sex: Female
  Weight: 95.2554 kg

DRUGS (4)
  1. VENLAFAXINE HCL [Suspect]
     Indication: ANXIETY
     Dosage: 75 MG TWICE PER DAY PO
     Route: 048
     Dates: start: 20091207, end: 20091229
  2. VENLAFAXINE HCL [Suspect]
     Indication: DEPRESSION
     Dosage: 75 MG TWICE PER DAY PO
     Route: 048
     Dates: start: 20091207, end: 20091229
  3. EFFEXOR XR [Suspect]
     Indication: ANXIETY
     Dosage: 150 MG ONCE PER DAY PO
     Route: 048
     Dates: start: 20050101
  4. EFFEXOR XR [Suspect]
     Indication: DEPRESSION
     Dosage: 150 MG ONCE PER DAY PO
     Route: 048
     Dates: start: 20050101

REACTIONS (3)
  - DIZZINESS [None]
  - PRODUCT SUBSTITUTION ISSUE [None]
  - WITHDRAWAL SYNDROME [None]
